FAERS Safety Report 19894943 (Version 1)
Quarter: 2021Q3

REPORT INFORMATION
  Report Type: Spontaneous
  Country: US (occurrence: US)
  Receive Date: 20210929
  Receipt Date: 20210929
  Transmission Date: 20211014
  Serious: Yes (Other)
  Sender: FDA-Public Use
  Company Number: US-AVET LIFESCIENCES LTD-2021-AVET-000028

PATIENT
  Age: 19 Month
  Sex: Male

DRUGS (2)
  1. BUSPIRONE [Suspect]
     Active Substance: BUSPIRONE HYDROCHLORIDE
  2. CLONIDINE. [Suspect]
     Active Substance: CLONIDINE

REACTIONS (3)
  - Fatigue [Recovered/Resolved]
  - Gait disturbance [Recovered/Resolved]
  - Accidental exposure to product [Recovered/Resolved]
